FAERS Safety Report 7950440-9 (Version None)
Quarter: 2011Q4

REPORT INFORMATION
  Report Type: 
  Country: None (occurrence: None)
  Receive Date: 20111130
  Receipt Date: 20111124
  Transmission Date: 20120403
  Serious: Yes (Other)
  Sender: FDA-Public Use
  Company Number: US-BAYER-2011-114545

PATIENT
  Sex: Female

DRUGS (1)
  1. MAGNEVIST [Suspect]
     Indication: NUCLEAR MAGNETIC RESONANCE IMAGING BRAIN
     Dosage: 15 ML, ONCE
     Route: 042
     Dates: start: 20111123, end: 20111123

REACTIONS (5)
  - URTICARIA [None]
  - SENSATION OF FOREIGN BODY [None]
  - DYSPNOEA [None]
  - APHAGIA [None]
  - NAUSEA [None]
